FAERS Safety Report 8572871-9 (Version None)
Quarter: 2012Q3

REPORT INFORMATION
  Report Type: 
  Country: None (occurrence: None)
  Receive Date: 20120806
  Receipt Date: 20120730
  Transmission Date: 20120928
  Serious: Yes (Other)
  Sender: FDA-Public Use
  Company Number: FI-009507513-1208FIN000622

PATIENT

DRUGS (1)
  1. JANUVIA [Suspect]
     Dosage: UNK
     Route: 048
     Dates: start: 20120413, end: 20120101

REACTIONS (6)
  - PRURITUS [None]
  - DRY SKIN [None]
  - PURPURA [None]
  - VULVOVAGINAL DISCOMFORT [None]
  - RASH [None]
  - URTICARIA [None]
